FAERS Safety Report 14141330 (Version 1)
Quarter: 2017Q4

REPORT INFORMATION
  Report Type: Spontaneous
  Country: GB (occurrence: GB)
  Receive Date: 20171030
  Receipt Date: 20171030
  Transmission Date: 20180321
  Serious: Yes (Other)
  Sender: FDA-Public Use
  Company Number: GB-PFIZER INC-2017463441

PATIENT
  Age: 62 Year
  Sex: Male

DRUGS (14)
  1. LANSOPRAZOLE. [Concomitant]
     Active Substance: LANSOPRAZOLE
     Dosage: UNK
     Dates: start: 20170111
  2. METHOCARBAMOL. [Concomitant]
     Active Substance: METHOCARBAMOL
     Dosage: UNK
     Dates: start: 20170111
  3. LACRI-LUBE [Concomitant]
     Dosage: UNK
     Dates: start: 20170810, end: 20170907
  4. AMITRIPTYLINE HYDROCHLORIDE. [Concomitant]
     Active Substance: AMITRIPTYLINE HYDROCHLORIDE
     Dosage: UNK
     Dates: start: 20170111
  5. ATORVASTATIN [Concomitant]
     Active Substance: ATORVASTATIN
     Dosage: UNK
     Dates: start: 20170111, end: 20170718
  6. FLUCLOXACILLIN [Concomitant]
     Active Substance: FLUCLOXACILLIN
     Dosage: UNK
     Dates: start: 20170810, end: 20170811
  7. FLUTICASONE FUROATE [Concomitant]
     Active Substance: FLUTICASONE FUROATE
     Dosage: UNK
     Dates: start: 20170718
  8. VOLTAROL [Concomitant]
     Active Substance: DICLOFENAC SODIUM
     Dosage: UNK
     Dates: start: 20170111
  9. CHLORAMPHENICOL [Concomitant]
     Active Substance: CHLORAMPHENICOL
     Dosage: UNK
     Dates: start: 20170718, end: 20170723
  10. CODEINE PHOSPHATE [Concomitant]
     Active Substance: CODEINE PHOSPHATE
     Dosage: UNK
     Dates: start: 20170111
  11. PROCHLORPERAZINE. [Concomitant]
     Active Substance: PROCHLORPERAZINE
     Dosage: UNK
     Dates: start: 20170111
  12. SODIUM CROMOGLICATE [Suspect]
     Active Substance: CROMOLYN SODIUM
     Dosage: UNK
     Dates: start: 20170718
  13. PARACETAMOL [Concomitant]
     Active Substance: ACETAMINOPHEN
     Dosage: UNK
     Dates: start: 20170111
  14. VITAMIN D3 [Concomitant]
     Active Substance: CHOLECALCIFEROL
     Dosage: UNK
     Dates: start: 20170111

REACTIONS (2)
  - Condition aggravated [Recovered/Resolved]
  - Eye irritation [Recovered/Resolved]

NARRATIVE: CASE EVENT DATE: 20171010
